FAERS Safety Report 5179603-5 (Version None)
Quarter: 2006Q4

REPORT INFORMATION
  Report Type: 
  Country: None (occurrence: None)
  Receive Date: 20061211
  Receipt Date: 20061019
  Transmission Date: 20070319
  Serious: Yes (Hospitalization, Other)
  Sender: FDA-Public Use
  Company Number: 2006137426

PATIENT
  Age: 71 Year
  Sex: Female
  Weight: 63.5036 kg

DRUGS (1)
  1. BEXTRA [Suspect]
     Indication: ARTHRITIS
     Dosage: 40 MG (20 MG, 2 IN 1 D) ORAL
     Route: 048
     Dates: start: 20040622

REACTIONS (4)
  - BLOOD CHOLESTEROL INCREASED [None]
  - CEREBROVASCULAR ACCIDENT [None]
  - CHEST PAIN [None]
  - HYPERTENSION [None]
